FAERS Safety Report 8056466-1 (Version None)
Quarter: 2012Q1

REPORT INFORMATION
  Report Type: 
  Country: None (occurrence: None)
  Receive Date: 20120119
  Receipt Date: 20120118
  Transmission Date: 20120608
  Serious: Yes (Hospitalization, Other)
  Sender: FDA-Public Use
  Company Number: US-BAYER-2012-005895

PATIENT
  Age: -1 Year
  Sex: Male

DRUGS (6)
  1. BETASERON [Suspect]
     Dosage: UNK
     Dates: start: 20070402, end: 20070607
  2. BETASERON [Suspect]
     Dosage: UNK
     Dates: start: 20081023, end: 20090205
  3. BETASERON [Suspect]
     Dosage: UNK
     Dates: start: 19950711, end: 20040503
  4. BETASERON [Suspect]
     Dosage: UNK
     Dates: start: 20060928, end: 20070314
  5. BETASERON [Suspect]
     Indication: RELAPSING-REMITTING MULTIPLE SCLEROSIS
     Dosage: 8 MIU, QOD
     Route: 058
     Dates: start: 20100207, end: 20100601
  6. FINGOLIMOD [Concomitant]
     Dosage: UNK
     Dates: start: 20100901, end: 20110601

REACTIONS (3)
  - PAIN IN EXTREMITY [None]
  - INTERVERTEBRAL DISC PROTRUSION [None]
  - MICTURITION URGENCY [None]
